FAERS Safety Report 7716041-2 (Version None)
Quarter: 2011Q3

REPORT INFORMATION
  Report Type: 
  Country: None (occurrence: None)
  Receive Date: 20110829
  Receipt Date: 20110812
  Transmission Date: 20111222
  Serious: Yes (Hospitalization)
  Sender: FDA-Public Use
  Company Number: US-GLAXOSMITHKLINE-A0873480A

PATIENT
  Sex: Female
  Weight: 100 kg

DRUGS (4)
  1. INSULIN [Concomitant]
  2. AVANDIA [Suspect]
     Indication: DIABETES MELLITUS
     Dosage: 4MG PER DAY
     Route: 048
     Dates: start: 20000101, end: 20070101
  3. GLUCOPHAGE [Concomitant]
  4. ATACAND [Concomitant]

REACTIONS (8)
  - CARDIOGENIC SHOCK [None]
  - ISCHAEMIC CARDIOMYOPATHY [None]
  - MYOCARDIAL INFARCTION [None]
  - CARDIAC ARREST [None]
  - HAEMORRHAGIC STROKE [None]
  - DEPRESSION [None]
  - CARDIAC FAILURE CONGESTIVE [None]
  - CORONARY ARTERY DISEASE [None]
